FAERS Safety Report 8118823-4 (Version None)
Quarter: 2012Q1

REPORT INFORMATION
  Report Type: 
  Country: None (occurrence: None)
  Receive Date: 20120207
  Receipt Date: 20120202
  Transmission Date: 20120608
  Serious: Yes (Death, Other)
  Sender: FDA-Public Use
  Company Number: GB-AMGEN-UK278581

PATIENT
  Age: 73 Year
  Sex: Male
  Weight: 79.1 kg

DRUGS (2)
  1. IRINOTECAN HCL [Concomitant]
     Dosage: 665 MG, UNK
     Route: 042
     Dates: start: 20070822, end: 20080508
  2. PANITUMUMAB [Suspect]
     Indication: COLORECTAL CANCER
     Dosage: 700 MG, UNK
     Route: 042
     Dates: start: 20070822, end: 20080508

REACTIONS (1)
  - INTERSTITIAL LUNG DISEASE [None]
